FAERS Safety Report 8696117 (Version 2)
Quarter: 2012Q4

REPORT INFORMATION
  Report Type: 
  Country: JP (occurrence: JP)
  Receive Date: 20120801
  Receipt Date: 20120828
  Transmission Date: 20130627
  Serious: Yes (Other)
  Sender: FDA-Public Use
  Company Number: JP-AMGEN-JPNSP2012046475

PATIENT
  Sex: Female

DRUGS (3)
  1. ENBREL [Suspect]
     Indication: PRODUCT USED FOR UNKNOWN INDICATION
     Dosage: 50 mg, weekly
  2. PREDONINE /00016201/ [Concomitant]
     Dosage: UNK
  3. PREDONINE [Concomitant]

REACTIONS (7)
  - Heart rate irregular [Unknown]
  - Palpitations [Unknown]
  - Blood pressure increased [Unknown]
  - Somnolence [Unknown]
  - Gingival pain [Unknown]
  - Gingival bleeding [Unknown]
  - Gingival infection [Unknown]
